FAERS Safety Report 22895648 (Version 10)
Quarter: 2024Q2

REPORT INFORMATION
  Report Type: Report from Study
  Country: US (occurrence: US)
  Receive Date: 20230901
  Receipt Date: 20240528
  Transmission Date: 20240715
  Serious: Yes (Hospitalization)
  Sender: FDA-Public Use
  Company Number: US-002147023-NVSC2023US185252

PATIENT
  Sex: Male

DRUGS (4)
  1. LEQVIO [Suspect]
     Active Substance: INCLISIRAN SODIUM
     Indication: Product used for unknown indication
     Dosage: UNK
     Route: 058
     Dates: start: 20230630
  2. NITROL [Concomitant]
     Active Substance: NITROGLYCERIN
     Indication: Product used for unknown indication
     Dosage: UNK
     Route: 065
  3. HYDROCODONE [Concomitant]
     Active Substance: HYDROCODONE
     Indication: Product used for unknown indication
     Dosage: UNK
     Route: 065
  4. UNSPECIFIED INGREDIENT [Concomitant]
     Active Substance: UNSPECIFIED INGREDIENT
     Indication: Product used for unknown indication
     Dosage: UNK
     Route: 065

REACTIONS (23)
  - Myocardial infarction [Unknown]
  - Arterial occlusive disease [Unknown]
  - Back pain [Unknown]
  - Limb discomfort [Unknown]
  - Eating disorder [Unknown]
  - Injection site pain [Unknown]
  - Joint swelling [Unknown]
  - Atrioventricular block complete [Unknown]
  - Gait disturbance [Unknown]
  - Muscle atrophy [Unknown]
  - Peripheral swelling [Unknown]
  - Arthralgia [Unknown]
  - Pain [Unknown]
  - Pain in extremity [Unknown]
  - Fall [Not Recovered/Not Resolved]
  - Back injury [Not Recovered/Not Resolved]
  - Contusion [Unknown]
  - Blood urine present [Unknown]
  - Burning feet syndrome [Unknown]
  - Drug ineffective [Unknown]
  - Influenza [Unknown]
  - Weight decreased [Unknown]
  - Sinus disorder [Unknown]
